FAERS Safety Report 8189835-X (Version None)
Quarter: 2012Q1

REPORT INFORMATION
  Report Type: 
  Country: None (occurrence: None)
  Receive Date: 20120307
  Receipt Date: 20110928
  Transmission Date: 20120608
  Serious: No
  Sender: FDA-Public Use
  Company Number: US-GLAXOSMITHKLINE-A0947705A

PATIENT
  Age: 73 Year
  Sex: Male

DRUGS (7)
  1. INDERAL [Suspect]
  2. SINEMET [Suspect]
  3. SEROQUEL [Suspect]
  4. REQUIP [Suspect]
  5. FLU VACCINE [Suspect]
     Indication: PROPHYLAXIS
     Route: 065
     Dates: start: 20101001, end: 20101001
  6. ARICEPT [Suspect]
  7. CLONAZEPAM [Suspect]

REACTIONS (2)
  - DRUG INTERACTION [None]
  - DRUG INEFFECTIVE [None]
